FAERS Safety Report 6894964-4 (Version None)
Quarter: 2010Q3

REPORT INFORMATION
  Report Type: 
  Country: None (occurrence: None)
  Receive Date: 20100730
  Receipt Date: 20100730
  Transmission Date: 20110219
  Serious: Yes (Hospitalization, Disabling, Other)
  Sender: FDA-Public Use
  Company Number: None

PATIENT
  Age: 71 Year
  Sex: Female
  Weight: 58.514 kg

DRUGS (2)
  1. FOSAMAX [Suspect]
     Indication: OSTEOPOROSIS
     Dosage: ONE 70 MG TABLET ONCE WEEKLY
     Dates: start: 20090619, end: 20090712
  2. ZOLEDRONIC ACID (RECLAST) [Suspect]
     Indication: OSTEOPOROSIS
     Dosage: 5MG/100ML ONCE A YEAR
     Dates: start: 20090803, end: 20100803

REACTIONS (6)
  - ANGIOPLASTY [None]
  - BLOOD CHOLESTEROL INCREASED [None]
  - CELLULITIS [None]
  - DRUG ADMINISTRATION ERROR [None]
  - HIP FRACTURE [None]
  - MUSCLE DISORDER [None]
